FAERS Safety Report 8827290 (Version 1)
Quarter: 2012Q4

REPORT INFORMATION
  Report Type: 
  Country: US (occurrence: US)
  Receive Date: 20121005
  Receipt Date: 20121005
  Transmission Date: 20130627
  Serious: No
  Sender: FDA-Public Use
  Company Number: US-ASTRAZENECA-2012SE54133

PATIENT
  Age: 61 Year
  Sex: Male
  Weight: 81.2 kg

DRUGS (13)
  1. CAPRELSA [Suspect]
     Indication: THYROID CANCER
     Route: 048
  2. CITRACAL PLUS [Concomitant]
  3. CREON [Concomitant]
  4. DOXAZOSIN MESYLATE [Concomitant]
  5. FENTANYL [Concomitant]
  6. IMODIUM A-D [Concomitant]
  7. LANTUS [Concomitant]
  8. OMEPRAZOLE [Concomitant]
  9. PROCHLORPERAZINE MALEATE [Concomitant]
  10. SYNTHROID [Concomitant]
  11. SULFA [Concomitant]
  12. CEPHALOSPORINS [Concomitant]
  13. ANTIBIOTICS [Concomitant]

REACTIONS (7)
  - Constipation [Not Recovered/Not Resolved]
  - Anxiety [Unknown]
  - Dyspnoea [Recovered/Resolved]
  - Neuropathy peripheral [Unknown]
  - Diarrhoea [Not Recovered/Not Resolved]
  - Dry skin [Not Recovered/Not Resolved]
  - Dry mouth [Not Recovered/Not Resolved]
